FAERS Safety Report 10920682 (Version 1)
Quarter: 2015Q1

REPORT INFORMATION
  Report Type: Spontaneous
  Country: IN (occurrence: None)
  Receive Date: 20150313
  Receipt Date: 20150313
  Transmission Date: 20150721
  Serious: Yes (Life-Threatening, Hospitalization)
  Sender: FDA-Public Use
  Company Number: None

PATIENT
  Age: 74 Year
  Sex: Female
  Weight: 65 kg

DRUGS (4)
  1. AFINITOR [Suspect]
     Active Substance: EVEROLIMUS
     Dosage: 1 PILL ONCE DAILY TAKEN BY MOUTH
     Route: 048
     Dates: start: 20150131, end: 20150220
  2. NEW CHAPTER MULTI VITAMIN [Concomitant]
  3. AROMASIN [Concomitant]
     Active Substance: EXEMESTANE
  4. NEW CHAPTER CALCIUM [Concomitant]

REACTIONS (4)
  - Pyrexia [None]
  - Chest X-ray abnormal [None]
  - No therapeutic response [None]
  - Cough [None]

NARRATIVE: CASE EVENT DATE: 20150307
